FAERS Safety Report 21246764 (Version 1)
Quarter: 2022Q3

REPORT INFORMATION
  Report Type: Spontaneous
  Country: US (occurrence: US)
  Receive Date: 20220824
  Receipt Date: 20220824
  Transmission Date: 20221027
  Serious: No
  Sender: FDA-Public Use
  Company Number: US-TEVA-2022-US-2063145

PATIENT
  Age: 55 Year
  Sex: Female

DRUGS (3)
  1. AJOVY [Suspect]
     Active Substance: FREMANEZUMAB-VFRM
     Indication: Migraine
     Dosage: 225/1.5 MG/ML
     Route: 065
     Dates: start: 2022, end: 2022
  2. AJOVY [Suspect]
     Active Substance: FREMANEZUMAB-VFRM
  3. IMITREX [Suspect]
     Active Substance: SUMATRIPTAN SUCCINATE
     Indication: Product used for unknown indication
     Route: 065

REACTIONS (4)
  - Injection site erythema [Unknown]
  - Feeling hot [Unknown]
  - Feeling abnormal [Unknown]
  - Insurance issue [Unknown]
